FAERS Safety Report 5946588-0 (Version None)
Quarter: 2008Q4

REPORT INFORMATION
  Report Type: 
  Country: None (occurrence: None)
  Receive Date: 20081110
  Receipt Date: 20081104
  Transmission Date: 20090506
  Serious: Yes (Hospitalization)
  Sender: FDA-Public Use
  Company Number: US-GILEAD-2008-0018156

PATIENT
  Sex: Male
  Weight: 118.04 kg

DRUGS (4)
  1. LETAIRIS [Suspect]
     Indication: PULMONARY HYPERTENSION
     Route: 048
  2. COUMADIN [Concomitant]
  3. LASIX [Concomitant]
  4. INSULIN [Concomitant]

REACTIONS (1)
  - PNEUMONIA [None]
